FAERS Safety Report 16000508 (Version 4)
Quarter: 2019Q1

REPORT INFORMATION
  Report Type: Report from Study
  Country: BE (occurrence: BE)
  Receive Date: 20190225
  Receipt Date: 20190320
  Transmission Date: 20190418
  Serious: Yes (Hospitalization, Other)
  Sender: FDA-Public Use
  Company Number: BE-BAYER-2019-034699

PATIENT
  Sex: Male

DRUGS (10)
  1. NEXAVAR [Suspect]
     Active Substance: SORAFENIB
     Indication: HEPATOCELLULAR CARCINOMA
     Dosage: DAILY DOSE 800 MG
     Dates: start: 20190131, end: 20190205
  2. PANTOMED [DEXPANTHENOL] [Concomitant]
     Dosage: DAILY DOSE 40 MG
  3. METFORMAX [Concomitant]
     Active Substance: METFORMIN HYDROCHLORIDE
     Indication: DIABETES MELLITUS
     Dosage: 3X850
  4. SIMVASTATIN. [Concomitant]
     Active Substance: SIMVASTATIN
     Dosage: 40 MG
  5. ASAFLOW [Concomitant]
     Active Substance: ASPIRIN
     Dosage: 80 MG
  6. ALDACTONE [Concomitant]
     Active Substance: SPIRONOLACTONE
     Indication: OEDEMA
     Dosage: 50 MG (3X/WEEK)
  7. BISOPROLOL [Concomitant]
     Active Substance: BISOPROLOL
     Dosage: 5 MG
  8. NEXAVAR [Suspect]
     Active Substance: SORAFENIB
     Indication: HEPATOCELLULAR CARCINOMA
     Dosage: DAILY DOSE 800 MG
     Dates: start: 20190207, end: 20190304
  9. BIFITERAL [Concomitant]
     Active Substance: LACTULOSE
     Dosage: 3X10 ML
  10. LISINOPRIL. [Concomitant]
     Active Substance: LISINOPRIL
     Indication: HYPERTENSION
     Dosage: IF NECESSARY

REACTIONS (10)
  - Diarrhoea [Not Recovered/Not Resolved]
  - Dry mouth [None]
  - Hepatic encephalopathy [Recovered/Resolved]
  - Decreased appetite [None]
  - Mucosal inflammation [Recovering/Resolving]
  - Cough [Recovering/Resolving]
  - Pain [None]
  - Palliative care [None]
  - Fatigue [Not Recovered/Not Resolved]
  - Skin irritation [Recovering/Resolving]

NARRATIVE: CASE EVENT DATE: 20190131
